FAERS Safety Report 23123775 (Version 1)
Quarter: 2023Q4

REPORT INFORMATION
  Report Type: Spontaneous
  Country: US (occurrence: US)
  Receive Date: 20231030
  Receipt Date: 20231030
  Transmission Date: 20240110
  Serious: No
  Sender: FDA-Public Use
  Company Number: US-BAYER-2023A152238

PATIENT
  Age: 59 Year
  Sex: Male

DRUGS (2)
  1. CLARITIN [Suspect]
     Active Substance: LORATADINE
     Indication: Hypersensitivity
     Dosage: 240 MG ,PSEUDOEPHEDRINE SULFATE ER
     Dates: start: 20231020
  2. CLARITIN [Suspect]
     Active Substance: LORATADINE
     Indication: Nasal congestion

REACTIONS (1)
  - Sinus congestion [Not Recovered/Not Resolved]

NARRATIVE: CASE EVENT DATE: 20231020
